FAERS Safety Report 8091201-2 (Version None)
Quarter: 2012Q1

REPORT INFORMATION
  Report Type: 
  Country: None (occurrence: None)
  Receive Date: 20120129
  Receipt Date: 20111024
  Transmission Date: 20120608
  Serious: No
  Sender: FDA-Public Use
  Company Number: US-ABBOTT-11P-163-0868091-00

PATIENT
  Sex: Female

DRUGS (4)
  1. HUMIRA [Suspect]
     Route: 058
     Dates: start: 20110906
  2. COLAZAL [Concomitant]
     Indication: CROHN'S DISEASE
     Dosage: 3 PILLS THREE TIMES DAILY
  3. HUMIRA [Suspect]
     Route: 058
     Dates: start: 20110823, end: 20110823
  4. HUMIRA [Suspect]
     Indication: CROHN'S DISEASE
     Route: 058
     Dates: start: 20110809, end: 20110809

REACTIONS (7)
  - CONTUSION [None]
  - INJECTION SITE ERYTHEMA [None]
  - ERYTHEMA [None]
  - INJECTION SITE DISCOLOURATION [None]
  - OEDEMA PERIPHERAL [None]
  - INJECTION SITE REACTION [None]
  - INJECTION SITE PAIN [None]
